FAERS Safety Report 14893954 (Version 1)
Quarter: 2018Q2

REPORT INFORMATION
  Report Type: Report from Study
  Country: KR (occurrence: KR)
  Receive Date: 20180514
  Receipt Date: 20180514
  Transmission Date: 20180711
  Serious: Yes (Hospitalization)
  Sender: FDA-Public Use
  Company Number: KR-TAKEDA-2018TEU003143

PATIENT
  Age: 61 Year
  Sex: Female
  Weight: 57 kg

DRUGS (36)
  1. STOGAR [Concomitant]
     Active Substance: LAFUTIDINE
     Indication: GASTRITIS
     Dosage: UNK
     Route: 048
     Dates: start: 20160530
  2. ROXOL [Concomitant]
     Dosage: UNK
     Dates: start: 20180312
  3. TAMIPOOL [Concomitant]
     Active Substance: VITAMINS
     Indication: ASTHMA
     Dosage: UNK
     Route: 042
     Dates: start: 20180411, end: 20180414
  4. PETHIDINE HCL [Concomitant]
     Indication: ASTHMA
     Dosage: UNK
     Route: 042
     Dates: start: 20180411, end: 20180414
  5. SOLONDO [Concomitant]
     Active Substance: PREDNISOLONE
     Indication: ASTHMA
     Dosage: UNK
     Route: 048
     Dates: start: 20180410, end: 20180412
  6. GASMOTIN [Concomitant]
     Active Substance: MOSAPRIDE CITRATE
     Indication: GASTRITIS
     Dosage: UNK
     Route: 048
     Dates: start: 20160607
  7. CEFTRIAXONE. [Concomitant]
     Active Substance: CEFTRIAXONE
     Indication: ASTHMA
     Dosage: UNK
     Route: 042
     Dates: start: 20180411, end: 20180414
  8. ASIMA [Concomitant]
     Active Substance: DOXOFYLLINE
     Indication: ASTHMA
     Dosage: UNK
     Route: 048
     Dates: start: 20110523
  9. ROXOL [Concomitant]
     Indication: COUGH
     Dosage: UNK
     Route: 048
     Dates: start: 20180115, end: 20180121
  10. ALMAGEL                            /00082501/ [Concomitant]
     Indication: GASTRITIS
     Dosage: UNK
     Route: 048
     Dates: start: 20180115, end: 20180121
  11. TRIDOL [Concomitant]
     Active Substance: TRAMADOL HYDROCHLORIDE
     Indication: ASTHMA
     Dosage: UNK
     Route: 042
     Dates: start: 20180411, end: 20180414
  12. MEIACT [Concomitant]
     Active Substance: CEFDITOREN PIVOXIL
     Indication: BRONCHITIS CHRONIC
     Dosage: UNK
     Route: 048
     Dates: start: 20180415
  13. SOLONDO [Concomitant]
     Active Substance: PREDNISOLONE
     Indication: ASTHMA
     Dosage: UNK
     Route: 048
     Dates: start: 20160705, end: 20180114
  14. SOLONDO [Concomitant]
     Active Substance: PREDNISOLONE
     Dosage: UNK
     Route: 048
     Dates: start: 20180415, end: 20180421
  15. PENIRAMIN [Concomitant]
     Indication: ASTHMA
     Dosage: UNK
     Route: 042
     Dates: start: 20180411, end: 20180414
  16. SUDAFED [Concomitant]
     Active Substance: PSEUDOEPHEDRINE HYDROCHLORIDE
     Indication: BRONCHITIS CHRONIC
     Dosage: UNK
     Route: 048
     Dates: end: 20180311
  17. AZEPTIN                            /00884001/ [Concomitant]
     Active Substance: AZELASTINE
     Indication: ASTHMA
     Dosage: UNK
     Route: 048
     Dates: start: 20090623
  18. DIABEX [Concomitant]
     Active Substance: METFORMIN HYDROCHLORIDE
     Indication: TYPE 2 DIABETES MELLITUS
     Dosage: UNK
     Route: 048
     Dates: start: 20171110
  19. ROXOL [Concomitant]
     Dosage: UNK
     Route: 048
     Dates: start: 20180212, end: 20180218
  20. BANAN [Concomitant]
     Active Substance: CEFPODOXIME PROXETIL
     Dosage: UNK
     Dates: start: 20180212, end: 20180218
  21. ALOGLIPTIN. [Suspect]
     Active Substance: ALOGLIPTIN
     Indication: TYPE 2 DIABETES MELLITUS
     Dosage: 25 MG, QD
     Route: 048
     Dates: start: 20171110
  22. ALMAGEL                            /00082501/ [Concomitant]
     Dosage: UNK
     Route: 048
     Dates: start: 20180212, end: 20180218
  23. ACTIFED [Concomitant]
     Active Substance: PSEUDOEPHEDRINE HYDROCHLORIDE\TRIPROLIDINE HYDROCHLORIDE
     Dosage: UNK
     Route: 048
     Dates: start: 20180212, end: 20180218
  24. BANAN [Concomitant]
     Active Substance: CEFPODOXIME PROXETIL
     Indication: COUGH
     Dosage: UNK
     Route: 048
     Dates: start: 20180115, end: 20180121
  25. PREDISOL                           /00049601/ [Concomitant]
     Indication: ASTHMA
     Dosage: UNK
     Route: 042
     Dates: start: 20180411, end: 20180414
  26. LASIX [Concomitant]
     Active Substance: FUROSEMIDE
     Indication: ASTHMA
     Dosage: UNK
     Route: 042
     Dates: start: 20180411, end: 20180414
  27. PERDIPINE [Concomitant]
     Active Substance: NICARDIPINE HYDROCHLORIDE
     Indication: ASTHMA
     Dosage: UNK
     Route: 042
     Dates: start: 20180411, end: 20180414
  28. OLMETEC [Concomitant]
     Active Substance: OLMESARTAN MEDOXOMIL
     Indication: HYPERTENSION
     Dosage: UNK
     Route: 048
     Dates: start: 20140313
  29. PHAZYME                            /00164001/ [Concomitant]
     Indication: GASTRITIS
     Dosage: UNK
     Route: 048
     Dates: start: 20180115, end: 20180121
  30. ACTIFED [Concomitant]
     Active Substance: PSEUDOEPHEDRINE HYDROCHLORIDE\TRIPROLIDINE HYDROCHLORIDE
     Dosage: UNK
     Route: 048
     Dates: start: 20180312
  31. KLARICID                           /00984601/ [Concomitant]
     Active Substance: CLARITHROMYCIN
     Indication: ASTHMA
     Dosage: UNK
     Route: 048
     Dates: start: 20180411
  32. PHAZYME                            /00164001/ [Concomitant]
     Dosage: UNK
     Route: 048
     Dates: start: 20180212, end: 20180218
  33. ACTIFED [Concomitant]
     Active Substance: PSEUDOEPHEDRINE HYDROCHLORIDE\TRIPROLIDINE HYDROCHLORIDE
     Indication: COUGH
     Dosage: UNK
     Route: 048
     Dates: start: 20180115, end: 20180121
  34. ERDOS [Concomitant]
     Active Substance: ERDOSTEINE
     Indication: COUGH
     Dosage: UNK
     Route: 048
     Dates: start: 20180115, end: 20180121
  35. ERDOS [Concomitant]
     Active Substance: ERDOSTEINE
     Dosage: UNK
     Route: 048
     Dates: start: 20180212, end: 20180218
  36. MECOOL [Concomitant]
     Indication: ASTHMA
     Dosage: UNK
     Route: 042
     Dates: start: 20180411, end: 20180414

REACTIONS (1)
  - Asthma [Recovered/Resolved]

NARRATIVE: CASE EVENT DATE: 20180401
